FAERS Safety Report 5092618-0 (Version None)
Quarter: 2006Q3

REPORT INFORMATION
  Report Type: 
  Country: None (occurrence: None)
  Receive Date: 20060727
  Receipt Date: 20060606
  Transmission Date: 20061208
  Serious: Yes (Other)
  Sender: FDA-Public Use
  Company Number: 2006073355

PATIENT
  Age: 75 Year
  Sex: Male
  Weight: 87.0906 kg

DRUGS (6)
  1. LYRICA [Suspect]
     Indication: POST HERPETIC NEURALGIA
     Dosage: 50 MG (25 MG, 2 IN 1 D), ORAL
     Route: 048
     Dates: start: 20051001, end: 20050101
  2. LIPITOR [Concomitant]
  3. ZETIA [Concomitant]
  4. NIASPAN [Concomitant]
  5. VITAMINS (VITAMINS) [Concomitant]
  6. DIOVAN [Concomitant]

REACTIONS (1)
  - DRUG INEFFECTIVE [None]
